FAERS Safety Report 6394018-X (Version None)
Quarter: 2009Q4

REPORT INFORMATION
  Report Type: 
  Country: None (occurrence: None)
  Receive Date: 20091008
  Receipt Date: 20090925
  Transmission Date: 20100525
  Serious: Yes (Hospitalization)
  Sender: FDA-Public Use
  Company Number: PHHY2009FR41737

PATIENT
  Age: 70 Year
  Sex: Female

DRUGS (2)
  1. ACLASTA [Suspect]
     Indication: OSTEOPOROSIS POSTMENOPAUSAL
     Dosage: 1ST INJECTION
     Route: 042
  2. ACLASTA [Suspect]
     Dosage: 2ND  INJECTION
     Route: 042

REACTIONS (3)
  - INFLUENZA LIKE ILLNESS [None]
  - LUNG DISORDER [None]
  - RENAL FAILURE ACUTE [None]
